FAERS Safety Report 23693099 (Version 1)
Quarter: 2024Q2

REPORT INFORMATION
  Report Type: Spontaneous
  Country: US (occurrence: US)
  Receive Date: 20240401
  Receipt Date: 20240401
  Transmission Date: 20240716
  Serious: Yes (Other)
  Sender: FDA-Public Use
  Company Number: US-PFIZER INC-PV202400042259

PATIENT
  Age: 48 Year

DRUGS (1)
  1. SOLU-MEDROL [Suspect]
     Active Substance: METHYLPREDNISOLONE SODIUM SUCCINATE
     Dosage: UNK

REACTIONS (5)
  - Multiple sclerosis [Unknown]
  - Arthritis [Unknown]
  - Dysarthria [Unknown]
  - Fatigue [Unknown]
  - Restlessness [Unknown]
